FAERS Safety Report 6811522-8 (Version None)
Quarter: 2010Q3

REPORT INFORMATION
  Report Type: 
  Country: None (occurrence: None)
  Receive Date: 20100701
  Receipt Date: 20100618
  Transmission Date: 20110219
  Serious: Yes (Other)
  Sender: FDA-Public Use
  Company Number: FR-AMGEN-QUU419644

PATIENT
  Age: 60 Year
  Sex: Female

DRUGS (3)
  1. ENBREL [Suspect]
     Indication: RHEUMATOID ARTHRITIS
     Dosage: UNKNOWN
     Route: 058
     Dates: start: 20050101
  2. ORAL ANTICOAGULANT NOS [Concomitant]
     Indication: MITRAL VALVE STENOSIS
     Dosage: UNKNOWN
     Route: 048
  3. CORTANCYL [Concomitant]
     Dosage: UNKNOWN
     Route: 048

REACTIONS (3)
  - CARDIOVASCULAR DISORDER [None]
  - LEUKOENCEPHALOPATHY [None]
  - MEMORY IMPAIRMENT [None]
